FAERS Safety Report 8422548-5 (Version None)
Quarter: 2012Q2

REPORT INFORMATION
  Report Type: 
  Country: None (occurrence: None)
  Receive Date: 20120608
  Receipt Date: 20120604
  Transmission Date: 20120825
  Serious: No
  Sender: FDA-Public Use
  Company Number: US-PFIZER INC-2012134121

PATIENT
  Sex: Male
  Weight: 66.667 kg

DRUGS (1)
  1. ADVIL MIGRAINE LIQUI-GELS [Suspect]
     Indication: MIGRAINE
     Dosage: 200 MG, 3X/DAY
     Route: 048
     Dates: start: 20120603, end: 20120604

REACTIONS (1)
  - DRUG INEFFECTIVE [None]
